FAERS Safety Report 14631745 (Version 7)
Quarter: 2018Q2

REPORT INFORMATION
  Report Type: Report from Study
  Country: US (occurrence: US)
  Receive Date: 20180313
  Receipt Date: 20180515
  Transmission Date: 20180711
  Serious: Yes (Hospitalization, Other)
  Sender: FDA-Public Use
  Company Number: US-CLOVIS ONCOLOGY-CLO-2018-000076

PATIENT
  Age: 67 Year
  Sex: Female

DRUGS (5)
  1. RUBRACA [Suspect]
     Active Substance: RUCAPARIB CAMSYLATE
     Dosage: 300 MG, QD
     Route: 048
     Dates: start: 20180408, end: 20180503
  2. RUBRACA [Suspect]
     Active Substance: RUCAPARIB CAMSYLATE
     Indication: OVARIAN CANCER
     Dosage: 600 MG, BID
     Route: 048
     Dates: start: 20171218, end: 20180124
  3. RUBRACA [Suspect]
     Active Substance: RUCAPARIB CAMSYLATE
     Dosage: 500 MG, BID
     Route: 048
     Dates: start: 20180118
  4. RUBRACA [Suspect]
     Active Substance: RUCAPARIB CAMSYLATE
     Dosage: 500 MG, BID
     Route: 048
     Dates: start: 20180223, end: 20180319
  5. RUBRACA [Suspect]
     Active Substance: RUCAPARIB CAMSYLATE
     Dosage: 400 MG, BID
     Route: 048
     Dates: start: 20180118, end: 2018

REACTIONS (45)
  - Neutropenia [Recovering/Resolving]
  - Red blood cell count decreased [Recovering/Resolving]
  - White blood cell count decreased [Not Recovered/Not Resolved]
  - Carbohydrate antigen 125 increased [Not Recovered/Not Resolved]
  - Myalgia [Unknown]
  - Oral candidiasis [Recovered/Resolved]
  - Neuropathy peripheral [Unknown]
  - Drug ineffective [Unknown]
  - Neutrophil count decreased [Not Recovered/Not Resolved]
  - Abdominal distension [Unknown]
  - Gait disturbance [Unknown]
  - Diarrhoea [Recovered/Resolved]
  - Fatigue [Unknown]
  - Constipation [Unknown]
  - Muscular weakness [Unknown]
  - Injection site pruritus [Unknown]
  - Injection site discolouration [Unknown]
  - Nausea [Unknown]
  - Dysgeusia [Unknown]
  - Asthenia [Recovering/Resolving]
  - Oral viral infection [Recovered/Resolved]
  - Vomiting [Recovered/Resolved]
  - Dysphagia [Recovered/Resolved]
  - Muscle spasms [Unknown]
  - Bone marrow failure [Unknown]
  - Eye irritation [Unknown]
  - Pyrexia [Recovered/Resolved]
  - Ascites [Unknown]
  - Haemoglobin decreased [Recovering/Resolving]
  - Depression [Unknown]
  - Dry eye [Recovering/Resolving]
  - Malignant neoplasm progression [Unknown]
  - Abdominal pain [Unknown]
  - Skin discolouration [Recovering/Resolving]
  - Oral bacterial infection [Recovered/Resolved]
  - Pyrexia [Unknown]
  - Abdominal pain upper [Not Recovered/Not Resolved]
  - Asthenia [Unknown]
  - Pruritus generalised [Not Recovered/Not Resolved]
  - Dizziness [Unknown]
  - Oral pain [Recovered/Resolved]
  - Oral fungal infection [Recovered/Resolved]
  - Platelet count decreased [Not Recovered/Not Resolved]
  - Headache [Unknown]
  - Administration site bruise [Recovering/Resolving]

NARRATIVE: CASE EVENT DATE: 2018
